FAERS Safety Report 12465789 (Version 9)
Quarter: 2017Q1

REPORT INFORMATION
  Report Type: Spontaneous
  Country: BR (occurrence: BR)
  Receive Date: 20160614
  Receipt Date: 20170117
  Transmission Date: 20170428
  Serious: Yes (Other)
  Sender: FDA-Public Use
  Company Number: BR-JNJFOC-20160605108

PATIENT
  Sex: Female
  Weight: 60 kg

DRUGS (9)
  1. ORTHO EVRA [Suspect]
     Active Substance: ETHINYL ESTRADIOL\NORELGESTROMIN
     Indication: AMENORRHOEA
     Route: 062
  2. ORTHO EVRA [Suspect]
     Active Substance: ETHINYL ESTRADIOL\NORELGESTROMIN
     Indication: CONTRACEPTION
     Route: 062
  3. ORTHO EVRA [Suspect]
     Active Substance: ETHINYL ESTRADIOL\NORELGESTROMIN
     Indication: MENSTRUAL CYCLE MANAGEMENT
     Route: 062
  4. PANTOGAR [Concomitant]
     Active Substance: AMINOBENZOIC ACID\CALCIUM PANTOTHENATE\CYSTINE\KERATIN\THIAMINE MONONITRATE
     Dates: start: 201603
  5. MATERNA [Concomitant]
     Active Substance: MINERALS\VITAMINS
     Dates: start: 2015
  6. ORTHO EVRA [Suspect]
     Active Substance: ETHINYL ESTRADIOL\NORELGESTROMIN
     Indication: CONTRACEPTION
     Route: 062
     Dates: start: 201406
  7. NORIPURUM [Concomitant]
     Active Substance: IRON POLYMALTOSE
     Dates: start: 201602
  8. ORTHO EVRA [Suspect]
     Active Substance: ETHINYL ESTRADIOL\NORELGESTROMIN
     Indication: AMENORRHOEA
     Route: 062
     Dates: start: 201406
  9. ORTHO EVRA [Suspect]
     Active Substance: ETHINYL ESTRADIOL\NORELGESTROMIN
     Indication: MENSTRUAL CYCLE MANAGEMENT
     Route: 062
     Dates: start: 201406

REACTIONS (13)
  - Metrorrhagia [Unknown]
  - Medication error [Unknown]
  - Menstrual disorder [Not Recovered/Not Resolved]
  - Wrong technique in product usage process [Unknown]
  - Product use issue [Unknown]
  - Weight decreased [Unknown]
  - Surgery [Unknown]
  - Skin irritation [Unknown]
  - Pruritus [Unknown]
  - Off label use [Unknown]
  - Metabolic surgery [Unknown]
  - Product quality issue [Unknown]
  - Inappropriate schedule of drug administration [Unknown]
